FAERS Safety Report 6257446-9 (Version None)
Quarter: 2009Q3

REPORT INFORMATION
  Report Type: 
  Country: None (occurrence: None)
  Receive Date: 20090706
  Receipt Date: 20090622
  Transmission Date: 20100115
  Serious: Yes (Hospitalization)
  Sender: FDA-Public Use
  Company Number: DE-ELI_LILLY_AND_COMPANY-DE200905005745

PATIENT
  Sex: Female
  Weight: 74.9 kg

DRUGS (8)
  1. HUMATROPE [Suspect]
     Indication: GROWTH HORMONE DEFICIENCY
     Dosage: 0.2 MG, DAILY (1/D)
     Route: 058
     Dates: end: 20090422
  2. FELODIPINE [Concomitant]
     Dosage: 5 X 1/2 EACH MORNING
     Route: 065
  3. BISOBETA [Concomitant]
     Dosage: 5 X 1 EACH MORNING
     Route: 065
  4. BISOBETA [Concomitant]
     Dosage: 2.5 TWICE DAILY.
     Route: 065
  5. HYDROCORTISONE [Concomitant]
     Dosage: 10 MG X 1.5 IN THE MORNING AND 1/2 AT NOON.
     Route: 065
  6. HYDROCORTISONE [Concomitant]
     Dosage: 15MG IN THE MORNING, 5 MG IN THE AFTERNOON AND NIGHT.
     Route: 065
  7. BERLTHYROX [Concomitant]
     Dosage: 100 UG EACH MORNING
     Route: 065
  8. PANTOZOL [Concomitant]
     Dosage: EACH MORNING
     Route: 065

REACTIONS (2)
  - CEREBROVASCULAR ACCIDENT [None]
  - URINARY TRACT INFECTION [None]
